FAERS Safety Report 18114366 (Version 1)
Quarter: 2020Q3

REPORT INFORMATION
  Report Type: Spontaneous
  Country: US (occurrence: US)
  Receive Date: 20200805
  Receipt Date: 20200805
  Transmission Date: 20201103
  Serious: No
  Sender: FDA-Public Use
  Company Number: None

PATIENT
  Age: 49 Year
  Sex: Female
  Weight: 58.5 kg

DRUGS (1)
  1. ERTONOGESTREL/ETHINYL ESTRADIOL VAGINAL RING [Suspect]
     Active Substance: ETHINYL ESTRADIOL\ETONOGESTREL
     Indication: CONTRACEPTION
     Dosage: ?          OTHER FREQUENCY:1/28 DAYS;?
     Route: 067
     Dates: start: 20200717, end: 20200731

REACTIONS (3)
  - Headache [None]
  - Polymenorrhoea [None]
  - Metrorrhagia [None]

NARRATIVE: CASE EVENT DATE: 20200731
